FAERS Safety Report 24739221 (Version 1)
Quarter: 2024Q4

REPORT INFORMATION
  Report Type: Spontaneous
  Country: JP (occurrence: JP)
  Receive Date: 20241216
  Receipt Date: 20241216
  Transmission Date: 20250115
  Serious: Yes (Other)
  Sender: PFIZER
  Company Number: JP-PFIZER INC-PV202400161050

PATIENT
  Age: 77 Year
  Sex: Female

DRUGS (1)
  1. METHOTREXATE SODIUM [Suspect]
     Active Substance: METHOTREXATE SODIUM
     Indication: Rheumatoid arthritis
     Dosage: 12 MG/WEEK
     Route: 048

REACTIONS (3)
  - Lymphoproliferative disorder [Recovering/Resolving]
  - Optic neuropathy [Recovering/Resolving]
  - Diffuse large B-cell lymphoma [Unknown]
